FAERS Safety Report 10036281 (Version 2)
Quarter: 2014Q1

REPORT INFORMATION
  Report Type: Spontaneous
  Country: US (occurrence: US)
  Receive Date: 20140325
  Receipt Date: 20140325
  Transmission Date: 20141002
  Serious: Yes (Death)
  Sender: FDA-Public Use
  Company Number: US-GE HEALTHCARE MEDICAL DIAGNOSTICS-OSCN-PR-0903S-0159

PATIENT
  Sex: Male

DRUGS (9)
  1. OMNISCAN [Suspect]
     Indication: PAIN
     Route: 042
     Dates: start: 20060803, end: 20060803
  2. OMNISCAN [Suspect]
     Indication: MUSCLE NECROSIS
     Route: 042
     Dates: start: 20060924, end: 20060924
  3. GADOLINIUM (UNSPECIFIED) [Suspect]
     Indication: ARTHRALGIA
     Route: 042
     Dates: start: 20060815, end: 20060815
  4. GADOLINIUM (UNSPECIFIED) [Suspect]
     Indication: SWELLING
     Route: 042
     Dates: start: 20060816, end: 20060816
  5. GADOLINIUM (UNSPECIFIED) [Suspect]
     Indication: ARTHRITIS BACTERIAL
     Route: 042
     Dates: start: 20060821, end: 20060821
  6. GADOLINIUM (UNSPECIFIED) [Suspect]
     Indication: CELLULITIS
     Route: 042
     Dates: start: 20060920, end: 20060920
  7. GADOLINIUM (UNSPECIFIED) [Suspect]
     Route: 042
     Dates: start: 20061007, end: 20061007
  8. MAGNEVIST [Suspect]
     Indication: HYPERTENSION
     Route: 042
     Dates: start: 20060306, end: 20060306
  9. MAGNEVIST [Suspect]
     Indication: RENAL FAILURE
     Route: 042
     Dates: start: 20060830, end: 20060830

REACTIONS (1)
  - Nephrogenic systemic fibrosis [Fatal]
